FAERS Safety Report 18965461 (Version 2)
Quarter: 2022Q4

REPORT INFORMATION
  Report Type: Spontaneous
  Country: US (occurrence: US)
  Receive Date: 20210304
  Receipt Date: 20221118
  Transmission Date: 20230113
  Serious: Yes (Other)
  Sender: FDA-Public Use
  Company Number: US-SA-SAC20210302000237

PATIENT
  Age: 61 Year
  Sex: Female

DRUGS (1)
  1. ZANTAC [Suspect]
     Active Substance: RANITIDINE HYDROCHLORIDE
     Indication: Dyspepsia
     Dosage: 75 MG, QD
     Dates: start: 199601, end: 201901

REACTIONS (6)
  - Colorectal cancer stage I [Unknown]
  - Gastrointestinal carcinoma [Recovering/Resolving]
  - Hepatic cancer stage III [Unknown]
  - Lung neoplasm malignant [Unknown]
  - Pancreatic carcinoma stage III [Unknown]
  - Small intestine carcinoma stage I [Unknown]

NARRATIVE: CASE EVENT DATE: 20191001
